FAERS Safety Report 6602863-8 (Version None)
Quarter: 2010Q1

REPORT INFORMATION
  Report Type: 
  Country: None (occurrence: None)
  Receive Date: 20100219
  Receipt Date: 20100127
  Transmission Date: 20100710
  Serious: Yes (Hospitalization)
  Sender: FDA-Public Use
  Company Number: CRC-10-029

PATIENT
  Age: 64 Year
  Sex: Female
  Weight: 53.978 kg

DRUGS (1)
  1. IDROFOS (IBANDRONATE) -SUN PHARMA. BONEVA NDA# 21-455 [Suspect]
     Indication: BONE DENSITY DECREASED
     Dosage: MONTHLY, ORAL
     Route: 048
     Dates: start: 20100110

REACTIONS (2)
  - BONE PAIN [None]
  - MOVEMENT DISORDER [None]
